FAERS Safety Report 14534103 (Version 1)
Quarter: 2018Q1

REPORT INFORMATION
  Report Type: Spontaneous
  Country: US (occurrence: US)
  Receive Date: 20180214
  Receipt Date: 20180214
  Transmission Date: 20180509
  Serious: Yes (Other)
  Sender: FDA-Public Use
  Company Number: None

PATIENT
  Age: 62 Year
  Sex: Female

DRUGS (2)
  1. STIVARGA [Suspect]
     Active Substance: REGORAFENIB
     Indication: COLON CANCER
     Dosage: 160MG QD X21DAYS AND 7 DAYS OFF PO
     Route: 048
     Dates: start: 20170927, end: 20180123
  2. STIVARGA [Suspect]
     Active Substance: REGORAFENIB
     Indication: METASTASES TO LIVER
     Dosage: 160MG QD X21DAYS AND 7 DAYS OFF PO
     Route: 048
     Dates: start: 20170927, end: 20180123

REACTIONS (1)
  - Malignant neoplasm progression [None]

NARRATIVE: CASE EVENT DATE: 20180123
